FAERS Safety Report 4914291-1 (Version None)
Quarter: 2006Q1

REPORT INFORMATION
  Report Type: 
  Country: None (occurrence: None)
  Receive Date: 20060213
  Receipt Date: 20060131
  Transmission Date: 20060701
  Serious: Yes (Hospitalization)
  Sender: FDA-Public Use
  Company Number: GXKR2006CA00736

PATIENT
  Age: 30 Year
  Sex: Male

DRUGS (8)
  1. VALPROIC ACID [Suspect]
     Indication: MANIA
     Dosage: 375 MG, QD, ORAL : 250 MG, TID  : 1500 MG, QD
     Route: 048
  2. PAROXETINE HCL [Suspect]
     Indication: MANIA
     Dosage: 10 MG, QD
  3. SERTRALINE (NGX)(SERTRALINE) [Suspect]
     Indication: MANIA
     Dosage: 50 MG, QD,
  4. LOPINAVIR W/RITONAVIR(LOPINAVIR, RITONAVIR) [Suspect]
     Indication: HIV INFECTION
     Dosage: 133 MG/33MG,
  5. AZITHROMYCIN [Concomitant]
  6. SULFAMETHOXAZOLE + TRIMETHOPRIM [Concomitant]
  7. TRAZODONE [Concomitant]
  8. LAMIVUDINE AND ZIDOVUDINE [Concomitant]

REACTIONS (7)
  - CONDITION AGGRAVATED [None]
  - DRUG INTERACTION [None]
  - DRUG LEVEL DECREASED [None]
  - HYPOMANIA [None]
  - MANIA [None]
  - REFUSAL OF TREATMENT BY PATIENT [None]
  - TREATMENT NONCOMPLIANCE [None]
